FAERS Safety Report 4872242-2 (Version None)
Quarter: 2005Q4

REPORT INFORMATION
  Report Type: 
  Country: None (occurrence: None)
  Receive Date: 20051201
  Receipt Date: 20050728
  Transmission Date: 20060501
  Serious: No
  Sender: FDA-Public Use
  Company Number: 2005PV000769

PATIENT
  Age: 50 Year
  Sex: Female

DRUGS (10)
  1. BYETTA [Suspect]
     Indication: DIABETES MELLITUS NON-INSULIN-DEPENDENT
     Dosage: 5 MCG;BID; SC
     Route: 058
     Dates: start: 20050716, end: 20050718
  2. POLYSPORIN [Suspect]
     Indication: SKIN DISORDER
     Dosage: TOP
     Route: 061
     Dates: start: 20050713, end: 20050718
  3. GLIPIZIDE [Concomitant]
  4. AVANDAMET [Concomitant]
  5. FOLIC ACID [Concomitant]
  6. ASPIRIN [Concomitant]
  7. MULTIVITAMIN ^LAPPE^ [Concomitant]
  8. OTC MENOPAUSAL PILL [Concomitant]
  9. DIOVAN HCT [Concomitant]
  10. PAXIL [Concomitant]

REACTIONS (3)
  - RASH [None]
  - RASH MACULO-PAPULAR [None]
  - RASH PRURITIC [None]
